FAERS Safety Report 8929283 (Version 1)
Quarter: 2012Q4

REPORT INFORMATION
  Report Type: Spontaneous
  Country: DE (occurrence: None)
  Receive Date: 20121119
  Receipt Date: 20121119
  Transmission Date: 20130627
  Serious: Yes (Other)
  Sender: FDA-Public Use
  Company Number: AUR-APL-2012-04852

PATIENT
  Age: 69 Year
  Sex: Male
  Weight: 77.9 kg

DRUGS (11)
  1. METFORMIN (METFORMIN) [Suspect]
     Indication: DIABETES MELLITUS
     Dosage: (1000 mg, 2 in 1 d)
     Route: 048
  2. IRINOTECAN [Suspect]
     Indication: COLORECTAL CANCER METASTATIC
     Dosage: (135 mg/m2,1 in 2 wk)
     Route: 042
     Dates: start: 20120521, end: 20121022
  3. BEVACIZUMAB [Suspect]
     Indication: COLORECTAL CANCER METASTATIC
     Dosage: (5 mg/kg,1 in 2 wk)
     Route: 042
     Dates: start: 20120521, end: 20121022
  4. FLUOROURACIL (FLUOROURACIL) [Suspect]
     Indication: COLORECTAL CANCER METASTATIC
     Dosage: (1800 mg,1 in 2 wk)
     Route: 042
     Dates: start: 20120521, end: 20121022
  5. FLUOROURACIL (FLUOROURACIL) [Suspect]
     Indication: COLORECTAL CANCER METASTATIC
     Dosage: (300 mg,1 in 2 wk)
     Route: 040
     Dates: start: 20120521, end: 20121022
  6. FOLINIC ACID [Suspect]
     Indication: COLORECTAL CANCER METASTATIC
     Dosage: (300 mg/m2,1 in 2 wk)
     Route: 042
     Dates: start: 20120521, end: 20121022
  7. FOLINIC ACID [Suspect]
     Indication: COLORECTAL CANCER METASTATIC
     Dosage: 21.4286 mg (300 mg, 1 in 2 wk), intravenous bolus
  8. DEXAMETHASONE [Suspect]
     Indication: VOMITING
     Dosage: (8 mg,1 in 2 wk)
     Route: 042
     Dates: start: 20120521
  9. GLIMEPIRIDE [Suspect]
     Indication: DIABETES MELLITUS
     Route: 048
  10. SIMVASTATIN (SIMVASTATIN) [Concomitant]
  11. LISINOPRIL (LISINOPRIL) [Concomitant]

REACTIONS (1)
  - Hypertensive crisis [None]
